FAERS Safety Report 6235523-6 (Version None)
Quarter: 2009Q2

REPORT INFORMATION
  Report Type: 
  Country: None (occurrence: None)
  Receive Date: 20090618
  Receipt Date: 20080915
  Transmission Date: 20091009
  Serious: No
  Sender: FDA-Public Use
  Company Number: US-ASTRAZENECA-2008UW16760

PATIENT
  Age: 43 Year
  Sex: Female

DRUGS (1)
  1. RHINOCORT [Suspect]
     Indication: RHINITIS
     Dosage: 32 MCG
     Route: 045

REACTIONS (1)
  - SKIN LACERATION [None]
